FAERS Safety Report 8885001 (Version 2)
Quarter: 2012Q4

REPORT INFORMATION
  Report Type: 
  Country: US (occurrence: US)
  Receive Date: 20121105
  Receipt Date: 20121121
  Transmission Date: 20130627
  Serious: Yes (Death, Hospitalization)
  Sender: FDA-Public Use
  Company Number: US-BIOGENIDEC-2012BI048904

PATIENT
  Age: 60 Year
  Sex: Female

DRUGS (8)
  1. TYSABRI [Suspect]
     Indication: MULTIPLE SCLEROSIS
     Route: 042
     Dates: start: 20111111, end: 20111111
  2. ASPIRIN [Concomitant]
  3. ATENOLOL [Concomitant]
  4. BACLOFEN [Concomitant]
  5. FLUOXETINE [Concomitant]
  6. PROVIGIL [Concomitant]
  7. EZETIMIBE [Concomitant]
  8. SIMVASTATIN [Concomitant]

REACTIONS (2)
  - Bacterial sepsis [Fatal]
  - Acute myeloid leukaemia [Not Recovered/Not Resolved]
